FAERS Safety Report 15021130 (Version 1)
Quarter: 2018Q2

REPORT INFORMATION
  Report Type: Spontaneous
  Country: US (occurrence: US)
  Receive Date: 20180618
  Receipt Date: 20180618
  Transmission Date: 20180711
  Serious: No
  Sender: FDA-Public Use
  Company Number: US-BAYER-2018-100006

PATIENT
  Age: 49 Year
  Sex: Female
  Weight: 96.15 kg

DRUGS (2)
  1. MULTIVITAMIN [Concomitant]
     Active Substance: VITAMINS
     Dosage: UNK
  2. MIRALAX [Suspect]
     Active Substance: POLYETHYLENE GLYCOL 3350
     Indication: GASTROINTESTINAL DISORDER
     Dosage: 17 GRAMS IN 8 OUNCE WATER ONCE DAILY
     Route: 048
     Dates: start: 201803, end: 201805

REACTIONS (8)
  - Product prescribing issue [None]
  - Blood glucose increased [Recovering/Resolving]
  - Off label use [Unknown]
  - Product use in unapproved indication [Unknown]
  - Blood glucose increased [Recovering/Resolving]
  - Blood triglycerides increased [Recovering/Resolving]
  - Blood triglycerides increased [Recovering/Resolving]
  - Drug administration error [Unknown]

NARRATIVE: CASE EVENT DATE: 201803
